FAERS Safety Report 16312355 (Version 1)
Quarter: 2019Q2

REPORT INFORMATION
  Report Type: Spontaneous
  Country: CN (occurrence: CN)
  Receive Date: 20190515
  Receipt Date: 20190515
  Transmission Date: 20190711
  Serious: Yes (Other)
  Sender: FDA-Public Use
  Company Number: CN-ROCHE-2316298

PATIENT
  Age: 47 Year
  Sex: Male

DRUGS (5)
  1. CAPECITABINE. [Suspect]
     Active Substance: CAPECITABINE
     Indication: RECTAL ADENOCARCINOMA
     Route: 048
     Dates: start: 20180110, end: 2018
  2. CAPECITABINE. [Suspect]
     Active Substance: CAPECITABINE
     Route: 048
     Dates: start: 20180505, end: 20180818
  3. CAPECITABINE. [Suspect]
     Active Substance: CAPECITABINE
     Indication: METASTASES TO LYMPH NODES
     Route: 048
     Dates: start: 20180220, end: 2018
  4. OXALIPLATIN. [Concomitant]
     Active Substance: OXALIPLATIN
     Indication: RECTAL ADENOCARCINOMA
     Route: 041
     Dates: start: 20180505, end: 20180818
  5. OXALIPLATIN. [Concomitant]
     Active Substance: OXALIPLATIN
     Indication: METASTASES TO LYMPH NODES

REACTIONS (3)
  - Anastomotic complication [Unknown]
  - Anal pruritus [Unknown]
  - Radiation proctitis [Unknown]
